FAERS Safety Report 7088891-X (Version None)
Quarter: 2010Q4

REPORT INFORMATION
  Report Type: 
  Country: None (occurrence: None)
  Receive Date: 20101108
  Receipt Date: 20101103
  Transmission Date: 20110411
  Serious: Yes (Other)
  Sender: FDA-Public Use
  Company Number: US-PFIZER INC-2010123710

PATIENT
  Sex: Male
  Weight: 83.9 kg

DRUGS (6)
  1. XANAX [Suspect]
     Indication: DEPRESSION
     Dosage: 1 MG, 1 AND A HALF TABLET AT NIGHT
     Route: 048
     Dates: start: 20080101
  2. XANAX [Suspect]
     Indication: ANXIETY
  3. CYMBALTA [Suspect]
     Indication: DEPRESSION
     Dosage: 20 MG, UNK
  4. CYMBALTA [Suspect]
     Indication: ANXIETY
  5. SEROQUEL [Suspect]
     Indication: DEPRESSION
     Dosage: 50 MG, UNK
  6. SEROQUEL [Suspect]
     Indication: ANXIETY

REACTIONS (8)
  - DRUG DEPENDENCE [None]
  - DRUG INTOLERANCE [None]
  - EJACULATION FAILURE [None]
  - FEELING ABNORMAL [None]
  - FRUSTRATION [None]
  - LIBIDO DECREASED [None]
  - MOOD ALTERED [None]
  - NERVOUSNESS [None]
